FAERS Safety Report 10989138 (Version 1)
Quarter: 2015Q2

REPORT INFORMATION
  Report Type: Report from Study
  Country: US (occurrence: US)
  Receive Date: 20150406
  Receipt Date: 20150406
  Transmission Date: 20150821
  Serious: No
  Sender: FDA-Public Use
  Company Number: US-AMGEN-USASL2015031674

PATIENT
  Age: 78 Year
  Sex: Male

DRUGS (1)
  1. ENBREL [Suspect]
     Active Substance: ETANERCEPT
     Indication: RHEUMATOID ARTHRITIS
     Dosage: 25 MG, 2 TIMES/WK
     Route: 065
     Dates: start: 20030101

REACTIONS (7)
  - Tooth fracture [Recovered/Resolved]
  - Arthritis [Recovered/Resolved]
  - Irritability [Recovered/Resolved]
  - Tooth impacted [Recovered/Resolved]
  - Mobility decreased [Recovered/Resolved]
  - Oral infection [Recovered/Resolved]
  - Joint lock [Recovered/Resolved]

NARRATIVE: CASE EVENT DATE: 2014
